FAERS Safety Report 10166916 (Version 4)
Quarter: 2014Q4

REPORT INFORMATION
  Report Type: Spontaneous
  Country: US (occurrence: US)
  Receive Date: 20140512
  Receipt Date: 20141006
  Transmission Date: 20150528
  Serious: Yes (Death, Hospitalization)
  Sender: FDA-Public Use
  Company Number: US-PFIZER INC-2014127613

PATIENT
  Age: 65 Year
  Sex: Male

DRUGS (22)
  1. WELLBUTRIN [Concomitant]
     Active Substance: BUPROPION HYDROCHLORIDE
     Dosage: 150 MG, 2X/DAY
     Dates: start: 20131106
  2. ACCUNEB [Concomitant]
     Active Substance: ALBUTEROL SULFATE
     Indication: WHEEZING
     Dosage: 3 ML (0.63 MG TOTAL) BY NEBULIZATION EVERY 6 HOURS AS NEEDED
     Route: 055
     Dates: start: 20140425
  3. ZOCOR [Concomitant]
     Active Substance: SIMVASTATIN
     Indication: HYPERCHOLESTEROLAEMIA
     Dosage: 1 DF, DAILY
  4. LASIX [Concomitant]
     Active Substance: FUROSEMIDE
     Dosage: 20 MG, DAILY
     Route: 048
  5. COMPAZINE [Concomitant]
     Active Substance: PROCHLORPERAZINE MALEATE
     Indication: NAUSEA
     Dosage: 10 MG, EVERY 6 HOURS AS NEEDED
     Dates: start: 20140414
  6. TYLENOL WITH CODEINE [Concomitant]
     Active Substance: ACETAMINOPHEN\CODEINE PHOSPHATE
     Indication: PAIN
     Dosage: 1 DF, EVERY 6 HOURS AS NEEDED
  7. XALKORI [Suspect]
     Active Substance: CRIZOTINIB
     Dosage: 250 MG, 2X/DAY
     Route: 048
     Dates: start: 201404, end: 20140611
  8. PRILOSEC [Concomitant]
     Active Substance: OMEPRAZOLE MAGNESIUM
     Dosage: 20 MG, DAILY
     Route: 048
     Dates: start: 20140409
  9. SENNALAX-S [Concomitant]
     Active Substance: DOCUSATE SODIUM\SENNOSIDES
     Indication: CONSTIPATION
     Dosage: 1 DF(8.6-50MG), AS NEEDED
     Route: 048
  10. LORAZEPAM. [Concomitant]
     Active Substance: LORAZEPAM
     Indication: ANXIETY
     Dosage: UNK
  11. NAPROSYN [Concomitant]
     Active Substance: NAPROXEN
     Dosage: 250 MG, 2X/DAY
     Route: 048
     Dates: start: 20131212
  12. COREG [Concomitant]
     Active Substance: CARVEDILOL
     Dosage: 12.5 MG, 2X/DAY
     Dates: start: 20131105
  13. ATIVAN [Concomitant]
     Active Substance: LORAZEPAM
     Indication: INSOMNIA
     Dosage: 1 MG, NIGHTLY AS NEEDED
     Route: 048
  14. XALKORI [Suspect]
     Active Substance: CRIZOTINIB
     Indication: NON-SMALL CELL LUNG CANCER
     Dosage: 250 MG, 2X/DAY
     Route: 048
     Dates: start: 20140310
  15. KLONOPIN [Concomitant]
     Active Substance: CLONAZEPAM
     Dosage: 1 MG, DAILY
     Route: 048
  16. DILT XR [Concomitant]
     Dosage: 240 MG, DAILY
     Route: 048
     Dates: start: 20131105
  17. CARDIZEM CD [Concomitant]
     Active Substance: DILTIAZEM HYDROCHLORIDE
     Dosage: 240 MG, DAILY
     Route: 048
  18. COMPAZINE [Concomitant]
     Active Substance: PROCHLORPERAZINE MALEATE
     Indication: VOMITING
  19. NORCO [Concomitant]
     Active Substance: ACETAMINOPHEN\HYDROCODONE BITARTRATE
     Dosage: UNK, AS NEEDED
     Route: 048
     Dates: start: 20131212
  20. FLEXERIL [Concomitant]
     Active Substance: CYCLOBENZAPRINE HYDROCHLORIDE
     Indication: MUSCLE SPASMS
     Dosage: 10 MG, 3 TIMES DAILY AS NEEDED
     Route: 048
     Dates: start: 20131212
  21. WELLBUTRIN [Concomitant]
     Active Substance: BUPROPION HYDROCHLORIDE
     Dosage: 150 MG, 4X/DAY
  22. TRICOR [Concomitant]
     Active Substance: FENOFIBRATE
     Dosage: 145 MG, DAILY
     Dates: start: 20131105

REACTIONS (5)
  - Pneumothorax [Fatal]
  - Ataxia [Unknown]
  - Dyspnoea [Fatal]
  - Confusional state [Unknown]
  - Dizziness [Unknown]

NARRATIVE: CASE EVENT DATE: 2014
